FAERS Safety Report 8620125-4 (Version None)
Quarter: 2012Q3

REPORT INFORMATION
  Report Type: 
  Country: None (occurrence: None)
  Receive Date: 20120824
  Receipt Date: 20120820
  Transmission Date: 20120928
  Serious: No
  Sender: FDA-Public Use
  Company Number: US-009507513-1208USA003124

PATIENT

DRUGS (1)
  1. IMPLANON [Suspect]
     Indication: CONTRACEPTION
     Dosage: 68 MG, 3 YEARS
     Route: 058
     Dates: start: 20120226, end: 20120813

REACTIONS (2)
  - PYREXIA [None]
  - HEADACHE [None]
